FAERS Safety Report 9314821 (Version 4)
Quarter: 2015Q3

REPORT INFORMATION
  Report Type: Report from Study
  Country: US (occurrence: US)
  Receive Date: 20130529
  Receipt Date: 20150821
  Transmission Date: 20151125
  Serious: Yes (Death, Other)
  Sender: FDA-Public Use
  Company Number: US-ROCHE-1228934

PATIENT

DRUGS (4)
  1. RITUXIMAB [Suspect]
     Active Substance: RITUXIMAB
     Indication: CHRONIC LYMPHOCYTIC LEUKAEMIA
     Dosage: FOR 8 CYCLES
     Route: 042
  2. CAL-101 (PI3K DELTA INHIBITOR) [Suspect]
     Active Substance: IDELALISIB
     Indication: LYMPHOCYTIC LYMPHOMA
  3. RITUXIMAB [Suspect]
     Active Substance: RITUXIMAB
     Indication: LYMPHOCYTIC LYMPHOMA
  4. CAL-101 (PI3K DELTA INHIBITOR) [Suspect]
     Active Substance: IDELALISIB
     Indication: CHRONIC LYMPHOCYTIC LEUKAEMIA
     Dosage: CONTINUOUSLY FOR 48 WEEKS (PRIMARY STUDY)
     Route: 065

REACTIONS (17)
  - Sepsis [Fatal]
  - Dehydration [Unknown]
  - Fatigue [Unknown]
  - Intestinal perforation [Unknown]
  - Aspartate aminotransferase increased [Recovering/Resolving]
  - Urinary tract infection [Unknown]
  - Dyspnoea [Unknown]
  - Diverticulitis [Unknown]
  - Pneumonitis [Fatal]
  - Pyrexia [Unknown]
  - Pneumonia [Fatal]
  - Metastatic malignant melanoma [Fatal]
  - Colitis [Unknown]
  - Rash [Unknown]
  - Alanine aminotransferase increased [Recovering/Resolving]
  - Diarrhoea [Unknown]
  - Respiratory failure [Unknown]
